FAERS Safety Report 19354110 (Version 2)
Quarter: 2023Q4

REPORT INFORMATION
  Report Type: Spontaneous
  Country: US (occurrence: US)
  Receive Date: 20210602
  Receipt Date: 20231227
  Transmission Date: 20240110
  Serious: No
  Sender: FDA-Public Use
  Company Number: US-SA-SAC20210527000846

PATIENT
  Age: 33 Year
  Sex: Male
  Weight: 80.7 kg

DRUGS (10)
  1. DUPIXENT [Suspect]
     Active Substance: DUPILUMAB
     Indication: Asthma
     Dosage: 200 MG, 1X
     Route: 058
     Dates: start: 20210513, end: 20210514
  2. DUPIXENT [Suspect]
     Active Substance: DUPILUMAB
     Indication: Colitis ulcerative
     Dosage: 200 MG, QOW
     Route: 058
  3. DUPIXENT [Suspect]
     Active Substance: DUPILUMAB
     Indication: Colitis
  4. SIMPONI [Concomitant]
     Active Substance: GOLIMUMAB
  5. PULMICORT FLEXHALER [Concomitant]
     Active Substance: BUDESONIDE
  6. BACTROBAN [Concomitant]
     Active Substance: MUPIROCIN CALCIUM
  7. VITAMINS NOS [Concomitant]
     Active Substance: VITAMINS
     Dosage: UNK, QD
  8. ZYFLO [Concomitant]
     Active Substance: ZILEUTON
  9. CELEBREX [Concomitant]
     Active Substance: CELECOXIB
     Dosage: 10MG
  10. ZYRTEC [Concomitant]
     Active Substance: CETIRIZINE HYDROCHLORIDE

REACTIONS (4)
  - Cough [Recovering/Resolving]
  - Wheezing [Recovering/Resolving]
  - Incorrect dose administered [Unknown]
  - Product use in unapproved indication [Unknown]

NARRATIVE: CASE EVENT DATE: 20210513
